FAERS Safety Report 12273500 (Version 3)
Quarter: 2016Q2

REPORT INFORMATION
  Report Type: Spontaneous
  Country: JP (occurrence: JP)
  Receive Date: 20160415
  Receipt Date: 20160429
  Transmission Date: 20160815
  Serious: Yes (Other)
  Sender: FDA-Public Use
  Company Number: JP-PFIZER INC-2016160159

PATIENT
  Age: 39 Year
  Sex: Male
  Weight: 62.2 kg

DRUGS (6)
  1. RANITIDINE HYDROCHLORIDE. [Interacting]
     Active Substance: RANITIDINE HYDROCHLORIDE
     Indication: ABDOMINAL PAIN UPPER
  2. CHAMPIX [Suspect]
     Active Substance: VARENICLINE TARTRATE
     Indication: SMOKING CESSATION THERAPY
     Dosage: UNK
     Route: 048
     Dates: start: 20160118, end: 201602
  3. RANITIDINE HYDROCHLORIDE. [Interacting]
     Active Substance: RANITIDINE HYDROCHLORIDE
     Indication: GASTRIC ULCER
     Dosage: UNK, AS NEEDED
     Dates: start: 201303
  4. MAZULENIN [Concomitant]
     Indication: ABDOMINAL PAIN UPPER
  5. CHAMPIX [Interacting]
     Active Substance: VARENICLINE TARTRATE
     Dosage: 1 MG, 2X/DAY
     Route: 048
     Dates: start: 20160216, end: 20160217
  6. MAZULENIN [Concomitant]
     Indication: GASTRIC ULCER
     Dosage: UNK, AS NEEDED
     Dates: start: 201303

REACTIONS (6)
  - Depressive symptom [Recovered/Resolved]
  - Suicidal ideation [Recovered/Resolved]
  - Dizziness [Recovered/Resolved]
  - Insomnia [Recovered/Resolved]
  - Drug interaction [Recovered/Resolved]
  - Suicidal behaviour [Recovered/Resolved]

NARRATIVE: CASE EVENT DATE: 20160118
